FAERS Safety Report 8496719-6 (Version None)
Quarter: 2012Q3

REPORT INFORMATION
  Report Type: 
  Country: None (occurrence: None)
  Receive Date: 20120709
  Receipt Date: 20120703
  Transmission Date: 20120928
  Serious: Yes (Other)
  Sender: FDA-Public Use
  Company Number: US-AMGEN-USASP2012040568

PATIENT
  Age: 53 Year
  Sex: Female

DRUGS (3)
  1. PROCRIT [Suspect]
     Indication: PRODUCT USED FOR UNKNOWN INDICATION
     Dosage: UNK
  2. EPOGEN [Suspect]
     Indication: ANAEMIA
     Dosage: 20000 IU, 2 TIMES/WK
     Dates: start: 20120601
  3. EPOGEN [Suspect]
     Dosage: 20000 IU, QWK
     Dates: start: 20120501

REACTIONS (2)
  - APLASIA PURE RED CELL [None]
  - DRUG INEFFECTIVE [None]
